FAERS Safety Report 8270910-6 (Version None)
Quarter: 2012Q2

REPORT INFORMATION
  Report Type: 
  Country: None (occurrence: None)
  Receive Date: 20120410
  Receipt Date: 20120404
  Transmission Date: 20120825
  Serious: Yes (Disabling, Other)
  Sender: FDA-Public Use
  Company Number: US-PFIZER INC-2012085987

PATIENT
  Sex: Female
  Weight: 68 kg

DRUGS (3)
  1. NEURONTIN [Suspect]
     Indication: NEUROPATHY PERIPHERAL
     Dosage: 1800 MG, 2X/DAY
     Route: 048
  2. LAMICTAL [Concomitant]
     Indication: NEUROPATHY PERIPHERAL
     Dosage: UNK
  3. NEURONTIN [Suspect]
     Indication: PAIN

REACTIONS (6)
  - BACK PAIN [None]
  - CARPAL TUNNEL SYNDROME [None]
  - DEPRESSION [None]
  - INTERVERTEBRAL DISC DISPLACEMENT [None]
  - HYPOAESTHESIA [None]
  - NEUROPATHY PERIPHERAL [None]
